FAERS Safety Report 20069051 (Version 5)
Quarter: 2024Q4

REPORT INFORMATION
  Report Type: Spontaneous
  Country: US (occurrence: US)
  Receive Date: 20211115
  Receipt Date: 20241106
  Transmission Date: 20250115
  Serious: Yes (Other)
  Sender: PFIZER
  Company Number: US-PFIZER INC-2021298984

PATIENT
  Age: 69 Year
  Sex: Female
  Weight: 104.33 kg

DRUGS (3)
  1. XELJANZ XR [Suspect]
     Active Substance: TOFACITINIB CITRATE
     Indication: Rheumatoid arthritis
     Dosage: 11 MG PO QD  (EVERY DAY)
     Route: 048
     Dates: start: 20210313
  2. XELJANZ XR [Suspect]
     Active Substance: TOFACITINIB CITRATE
     Indication: Arthralgia
     Dosage: 11 MG, 2X/DAY
  3. XELJANZ XR [Suspect]
     Active Substance: TOFACITINIB CITRATE
     Indication: Back pain
     Dosage: 11 MG, ALTERNATE DAY (EVERY OTHER DAY, AT BEDTIME)

REACTIONS (15)
  - Myocardial infarction [Unknown]
  - Cerebrovascular accident [Unknown]
  - Vascular pain [Unknown]
  - Thrombosis [Unknown]
  - Off label use [Unknown]
  - Intentional product misuse [Unknown]
  - Dizziness [Unknown]
  - Arthralgia [Not Recovered/Not Resolved]
  - Gait disturbance [Not Recovered/Not Resolved]
  - Joint swelling [Not Recovered/Not Resolved]
  - Neck pain [Unknown]
  - Pain in extremity [Unknown]
  - Nasal congestion [Unknown]
  - Cough [Unknown]
  - Pain [Unknown]

NARRATIVE: CASE EVENT DATE: 20240101
